FAERS Safety Report 5235976-6 (Version None)
Quarter: 2007Q1

REPORT INFORMATION
  Report Type: 
  Country: None (occurrence: None)
  Receive Date: 20070212
  Receipt Date: 20070130
  Transmission Date: 20070707
  Serious: Yes (Other)
  Sender: FDA-Public Use
  Company Number: DE-ELI_LILLY_AND_COMPANY-DE200701002023

PATIENT
  Age: 68 Year
  Sex: Female
  Weight: 50 kg

DRUGS (4)
  1. FORTEO [Suspect]
     Indication: OSTEOPOROSIS
     Route: 058
     Dates: start: 20040601, end: 20051215
  2. ANALGESICS [Concomitant]
  3. ANTIDEPRESSANTS [Concomitant]
  4. CARDIAC THERAPY [Concomitant]

REACTIONS (2)
  - DYSPNOEA [None]
  - WEIGHT INCREASED [None]
